FAERS Safety Report 5752653-3 (Version None)
Quarter: 2008Q2

REPORT INFORMATION
  Report Type: 
  Country: None (occurrence: None)
  Receive Date: 20080529
  Receipt Date: 20080411
  Transmission Date: 20081010
  Serious: No
  Sender: FDA-Public Use
  Company Number: US-BAYER-200811653BCC

PATIENT
  Age: 85 Year
  Sex: Male
  Weight: 82 kg

DRUGS (2)
  1. ALEVE [Suspect]
     Indication: BACK PAIN
     Route: 048
     Dates: start: 20080411, end: 20080411
  2. ALEVE [Suspect]
     Route: 048
     Dates: start: 20080411, end: 20080411

REACTIONS (1)
  - BACK PAIN [None]
